FAERS Safety Report 8707486 (Version 2)
Quarter: 2012Q4

REPORT INFORMATION
  Report Type: 
  Country: US (occurrence: US)
  Receive Date: 20120804
  Receipt Date: 20121029
  Transmission Date: 20130627
  Serious: No
  Sender: FDA-Public Use
  Company Number: US-009507513-1207USA010832

PATIENT
  Sex: Male
  Weight: 63.49 kg

DRUGS (2)
  1. PEGINTRON [Suspect]
     Indication: HEPATITIS C
     Dosage: UNK
     Route: 048
     Dates: start: 20120616
  2. REBETOL [Suspect]
     Indication: HEPATITIS C
     Dosage: UNK
     Route: 048
     Dates: start: 20120616

REACTIONS (17)
  - Influenza [Unknown]
  - Constipation [Unknown]
  - Neck pain [Unknown]
  - Back pain [Unknown]
  - Feeling abnormal [Unknown]
  - Musculoskeletal pain [Unknown]
  - Weight decreased [Unknown]
  - Decreased appetite [Unknown]
  - Headache [Unknown]
  - Stomatitis [Unknown]
  - Asthenia [Unknown]
  - Nausea [Unknown]
  - Rash [Unknown]
  - Pruritus [Unknown]
  - White blood cell count decreased [Unknown]
  - Confusional state [Unknown]
  - Disturbance in attention [Unknown]
